FAERS Safety Report 17031305 (Version 1)
Quarter: 2019Q4

REPORT INFORMATION
  Report Type: Spontaneous
  Country: US (occurrence: US)
  Receive Date: 20191113
  Receipt Date: 20191113
  Transmission Date: 20200122
  Serious: Yes (Other)
  Sender: FDA-Public Use
  Company Number: None

PATIENT
  Age: 55 Year
  Sex: Male
  Weight: 84 kg

DRUGS (11)
  1. ONDANSETRON [Concomitant]
     Active Substance: ONDANSETRON
  2. DOXORUBICIN [Concomitant]
     Active Substance: DOXORUBICIN
  3. LISINOPRIL. [Concomitant]
     Active Substance: LISINOPRIL
  4. METOPROLOL. [Concomitant]
     Active Substance: METOPROLOL
  5. MESNA. [Concomitant]
     Active Substance: MESNA
  6. OMEPRAZOLE. [Concomitant]
     Active Substance: OMEPRAZOLE
  7. ENOXAPARIN [Concomitant]
     Active Substance: ENOXAPARIN
  8. IFOSFAMIDE. [Suspect]
     Active Substance: IFOSFAMIDE
     Indication: SARCOMA
     Route: 042
     Dates: start: 20191021
  9. ACETAMINOPHEN. [Concomitant]
     Active Substance: ACETAMINOPHEN
  10. DEXAMETHASONE. [Concomitant]
     Active Substance: DEXAMETHASONE
  11. ALLOPURINOL. [Concomitant]
     Active Substance: ALLOPURINOL

REACTIONS (1)
  - Confusional state [None]

NARRATIVE: CASE EVENT DATE: 20191025
